FAERS Safety Report 6857899-9 (Version None)
Quarter: 2010Q3

REPORT INFORMATION
  Report Type: 
  Country: None (occurrence: None)
  Receive Date: 20100714
  Receipt Date: 20100701
  Transmission Date: 20110219
  Serious: Yes (Hospitalization)
  Sender: FDA-Public Use
  Company Number: DSJ-2010-10919

PATIENT
  Age: 73 Year
  Sex: Female

DRUGS (8)
  1. BENICAR HCT [Suspect]
     Indication: HYPERTENSION
     Dosage: 20/12, 5 MG (1 IN 1 D), PER ORAL
     Route: 048
     Dates: start: 20091113
  2. AMIODARONE HCL [Concomitant]
  3. PREDNISOLONE [Concomitant]
  4. BROMOPRIDE (BROMOPRIDE) (BROMOPRIDE) [Concomitant]
  5. ACETAMINOPHEN (PARACETAMOL) (PARACETAMOL) [Concomitant]
  6. CALCIUM CARBONATE (CALCIUM CARBONATE) (CALCIUM CARBONATE) [Concomitant]
  7. GLUCOSAMINE (GLUCOSAMINE) (GLUCOSAMINE) [Concomitant]
  8. OMEPRAZOLE [Concomitant]

REACTIONS (2)
  - DRUG INEFFECTIVE [None]
  - MELAENA [None]
